FAERS Safety Report 16647605 (Version 1)
Quarter: 2019Q3

REPORT INFORMATION
  Report Type: Spontaneous
  Country: US (occurrence: US)
  Receive Date: 20190729
  Receipt Date: 20190729
  Transmission Date: 20191004
  Serious: Yes (Hospitalization)
  Sender: FDA-Public Use
  Company Number: None

PATIENT
  Age: 59 Year
  Sex: Female

DRUGS (6)
  1. FEMARA TAB 2.5 MG [Concomitant]
  2. SEROQUEL TAB 100 MG [Concomitant]
  3. PROLIA [Concomitant]
     Active Substance: DENOSUMAB
  4. IBRANCE [Suspect]
     Active Substance: PALBOCICLIB
     Indication: BREAST CANCER FEMALE
     Route: 048
     Dates: start: 20180925
  5. TRAMADOL HCL TAB 50 MG [Concomitant]
  6. SYNTHROID TAB 50 MCG [Concomitant]

REACTIONS (1)
  - Thrombosis [None]
